FAERS Safety Report 21694299 (Version 1)
Quarter: 2022Q4

REPORT INFORMATION
  Report Type: Spontaneous
  Country: US (occurrence: None)
  Receive Date: 20221206
  Receipt Date: 20221206
  Transmission Date: 20230113
  Serious: Yes (Other)
  Sender: FDA-Public Use
  Company Number: None

PATIENT
  Age: 37 Year
  Sex: Female
  Weight: 68.9 kg

DRUGS (1)
  1. VENOFER [Suspect]
     Active Substance: IRON SUCROSE
     Indication: Iron deficiency anaemia
     Dosage: FREQUENCY : WEEKLY;?
     Route: 041

REACTIONS (5)
  - Throat irritation [None]
  - Throat tightness [None]
  - Feeling jittery [None]
  - Infusion related reaction [None]
  - Dysarthria [None]

NARRATIVE: CASE EVENT DATE: 20221206
